FAERS Safety Report 21943717 (Version 2)
Quarter: 2023Q1

REPORT INFORMATION
  Report Type: Report from Study
  Country: NI (occurrence: None)
  Receive Date: 20230202
  Receipt Date: 20230321
  Transmission Date: 20230418
  Serious: Yes (Other)
  Sender: FDA-Public Use
  Company Number: NI-Merck Healthcare KGaA-9381104

PATIENT
  Age: 13 Year
  Sex: Male

DRUGS (1)
  1. SAIZEN [Suspect]
     Active Substance: SOMATROPIN
     Indication: Product used for unknown indication
     Route: 058
     Dates: start: 20210504

REACTIONS (1)
  - Craniopharyngioma [Recovering/Resolving]

NARRATIVE: CASE EVENT DATE: 20220701
